FAERS Safety Report 11437673 (Version 1)
Quarter: 2015Q3

REPORT INFORMATION
  Report Type: Spontaneous
  Country: US (occurrence: US)
  Receive Date: 20150821
  Receipt Date: 20150821
  Transmission Date: 20151125
  Serious: No
  Sender: FDA-Public Use
  Company Number: US-ELI_LILLY_AND_COMPANY-US200706002234

PATIENT
  Age: 60 Year
  Sex: Male

DRUGS (11)
  1. CYMBALTA [Suspect]
     Active Substance: DULOXETINE HYDROCHLORIDE
     Indication: DEPRESSION
     Dosage: 120 MG, DAILY (1/D)
     Route: 048
     Dates: start: 2004, end: 200706
  2. PLAVIX [Concomitant]
     Active Substance: CLOPIDOGREL BISULFATE
  3. HOMOCYSTEINE THIOLACTONE [Concomitant]
  4. RAMELTEON [Concomitant]
     Active Substance: RAMELTEON
  5. CLONIDINE. [Concomitant]
     Active Substance: CLONIDINE
  6. VITAMIN B12 [Concomitant]
     Active Substance: CYANOCOBALAMIN
  7. VITAMINS                           /90003601/ [Concomitant]
     Active Substance: VITAMINS
  8. ASA [Concomitant]
     Active Substance: ASPIRIN
  9. VITAMIN B6 [Concomitant]
     Active Substance: PYRIDOXINE HYDROCHLORIDE
  10. HYZAAR [Concomitant]
     Active Substance: HYDROCHLOROTHIAZIDE\LOSARTAN POTASSIUM
  11. FOLIC ACID. [Concomitant]
     Active Substance: FOLIC ACID

REACTIONS (5)
  - Diarrhoea [Unknown]
  - Hyperhidrosis [Recovered/Resolved]
  - Sensory disturbance [Recovered/Resolved]
  - Temperature regulation disorder [Recovered/Resolved]
  - Chills [Recovered/Resolved]

NARRATIVE: CASE EVENT DATE: 200706
